FAERS Safety Report 26019140 (Version 2)
Quarter: 2025Q4

REPORT INFORMATION
  Report Type: Report from Study
  Country: EU (occurrence: EU)
  Receive Date: 20251110
  Receipt Date: 20251113
  Transmission Date: 20260118
  Serious: Yes (Other)
  Sender: JOHNSON AND JOHNSON
  Company Number: EU-JNJFOC-20251143353

PATIENT

DRUGS (2)
  1. TALQUETAMAB [Suspect]
     Active Substance: TALQUETAMAB
     Indication: Plasma cell myeloma refractory
     Route: 065
  2. HUMAN IMMUNOGLOBULIN G [Concomitant]
     Active Substance: HUMAN IMMUNOGLOBULIN G
     Indication: Product used for unknown indication

REACTIONS (13)
  - Immune effector cell-associated neurotoxicity syndrome [Unknown]
  - Neuropathy peripheral [Unknown]
  - Pneumonia [Unknown]
  - Septic shock [Unknown]
  - Oesophageal candidiasis [Unknown]
  - Pyelonephritis [Unknown]
  - Radiculopathy [Recovering/Resolving]
  - Upper respiratory tract infection [Unknown]
  - COVID-19 [Unknown]
  - Influenza [Unknown]
  - Rhinovirus infection [Unknown]
  - Prostatitis [Unknown]
  - Infection [Unknown]
